FAERS Safety Report 20700808 (Version 1)
Quarter: 2022Q2

REPORT INFORMATION
  Report Type: Spontaneous
  Country: US (occurrence: US)
  Receive Date: 20220412
  Receipt Date: 20220412
  Transmission Date: 20220721
  Serious: Yes (Other)
  Sender: FDA-Public Use
  Company Number: US-PFIZER INC-202200508126

PATIENT
  Age: 72 Year
  Sex: Male
  Weight: 78.912 kg

DRUGS (1)
  1. VANCOMYCIN HYDROCHLORIDE [Suspect]
     Active Substance: VANCOMYCIN HYDROCHLORIDE
     Dosage: 15 UG/KG, 2X/DAY
     Route: 042
     Dates: start: 20220220, end: 20220221

REACTIONS (10)
  - Arthritis bacterial [Unknown]
  - Staphylococcal bacteraemia [Recovered/Resolved]
  - Central venous catheterisation [Unknown]
  - Arthralgia [Unknown]
  - Fatigue [Unknown]
  - Joint swelling [Unknown]
  - Hypotension [Unknown]
  - Dehydration [Unknown]
  - Gait disturbance [Unknown]
  - Prescribed underdose [Unknown]

NARRATIVE: CASE EVENT DATE: 20220220
